FAERS Safety Report 7791789-2 (Version None)
Quarter: 2011Q4

REPORT INFORMATION
  Report Type: 
  Country: None (occurrence: None)
  Receive Date: 20111003
  Receipt Date: 20110928
  Transmission Date: 20120403
  Serious: No
  Sender: FDA-Public Use
  Company Number: US-PFIZER INC-2011231584

PATIENT
  Sex: Male

DRUGS (2)
  1. NEURONTIN [Suspect]
     Indication: RESTLESS LEGS SYNDROME
     Dosage: 300MG THREE TABLETS ONCE AT NIGHT
     Route: 048
     Dates: start: 20110901
  2. NEURONTIN [Suspect]
     Dosage: UNK
     Dates: start: 20110901

REACTIONS (2)
  - INSOMNIA [None]
  - DRUG INEFFECTIVE [None]
